FAERS Safety Report 5258261-5 (Version None)
Quarter: 2007Q1

REPORT INFORMATION
  Report Type: 
  Country: None (occurrence: None)
  Receive Date: 20070302
  Receipt Date: 20070216
  Transmission Date: 20070707
  Serious: Yes (Hospitalization)
  Sender: FDA-Public Use
  Company Number: BR-1161115

PATIENT
  Age: 33 Year
  Sex: Female

DRUGS (1)
  1. NAPHCON (NAPHAZOLINE) SOLUTION (BATCH#S: 29595) [Suspect]
     Dosage: EYE DROPS, SOLUTION
     Route: 047
     Dates: start: 20061221, end: 20061221

REACTIONS (1)
  - MYOCARDIAL INFARCTION [None]
